FAERS Safety Report 4615774-4 (Version None)
Quarter: 2005Q2

REPORT INFORMATION
  Report Type: 
  Country: None (occurrence: None)
  Receive Date: 20050310
  Receipt Date: 20041116
  Transmission Date: 20051028
  Serious: Yes (Hospitalization)
  Sender: FDA-Public Use
  Company Number: F03200400106

PATIENT
  Age: 44 Year
  Sex: Female
  Weight: 52.7 kg

DRUGS (5)
  1. ELOXATIN [Suspect]
     Indication: PANCREATIC CARCINOMA METASTATIC
     Dosage: 130 MG/M2 ONCE - INTRAVENOUS NOS
     Route: 042
     Dates: start: 20041014, end: 20041014
  2. TAXOTERE [Suspect]
     Indication: PANCREATIC CARCINOMA METASTATIC
     Dosage: 35 MG/M2 1/WEEK - INTRAVENOUS NOS
     Route: 042
     Dates: start: 20041021, end: 20041021
  3. ENOXAPARIN SODIUM [Concomitant]
  4. FENTANYL [Concomitant]
  5. PERCOCET [Concomitant]

REACTIONS (5)
  - ANAEMIA [None]
  - CLOSTRIDIAL INFECTION [None]
  - HYPOTENSION [None]
  - PYREXIA [None]
  - URINARY TRACT INFECTION [None]
